FAERS Safety Report 10776818 (Version 2)
Quarter: 2015Q1

REPORT INFORMATION
  Report Type: Spontaneous
  Country: US (occurrence: US)
  Receive Date: 20150209
  Receipt Date: 20150218
  Transmission Date: 20150721
  Serious: Yes (Other)
  Sender: FDA-Public Use
  Company Number: US-PERRIGO-15US000813

PATIENT
  Age: 80 Year
  Sex: Male
  Weight: 88.44 kg

DRUGS (24)
  1. KEPPRA [Concomitant]
     Active Substance: LEVETIRACETAM
     Indication: HEADACHE
     Dosage: 750 MG, QHS
     Route: 048
  2. FLONASE                            /00908302/ [Concomitant]
     Indication: HYPERSENSITIVITY
     Dosage: 50 MCG, UNK
     Route: 045
  3. PLENDIL [Concomitant]
     Active Substance: FELODIPINE
     Indication: HEADACHE
     Dosage: 10MG, UNK
     Route: 048
  4. PLENDIL [Concomitant]
     Active Substance: FELODIPINE
     Indication: HYPERTENSION
  5. FISH OIL [Concomitant]
     Active Substance: FISH OIL
     Indication: HEADACHE
     Dosage: 1200MG, UNK
     Route: 048
  6. TUSSIN [Suspect]
     Active Substance: GUAIFENESIN
     Indication: NASOPHARYNGITIS
     Dosage: 10 ML EVERY 4 HOURS
     Route: 048
     Dates: start: 20150124, end: 20150126
  7. COQ10                              /00517201/ [Concomitant]
     Indication: HEADACHE
     Dosage: UNK, UNK
     Route: 048
     Dates: start: 201412
  8. NAPROXEN. [Concomitant]
     Active Substance: NAPROXEN
     Indication: ARTHRITIS
     Dosage: 500 MG, UNK
     Route: 048
  9. B COMPLEX (B50) [Concomitant]
     Indication: HEADACHE
     Dosage: UNK, UNK
     Route: 048
  10. MELATONIN [Concomitant]
     Active Substance: MELATONIN
     Indication: HEADACHE
     Dosage: 3MG, UNK
     Route: 048
  11. ASPIRIN. [Concomitant]
     Active Substance: ASPIRIN
     Indication: ANTICOAGULANT THERAPY
     Dosage: 81MG, UNK
     Route: 048
  12. NEXIUM [Concomitant]
     Active Substance: ESOMEPRAZOLE MAGNESIUM
     Indication: GASTROOESOPHAGEAL REFLUX DISEASE
     Dosage: UNK, UNK
     Route: 048
  13. VITAMIN B2                         /00154901/ [Concomitant]
     Indication: HEADACHE
     Dosage: UNK, UNK
     Route: 065
  14. ATENOLOL. [Concomitant]
     Active Substance: ATENOLOL
     Indication: HYPERTENSION
  15. VITAMIN D3 [Concomitant]
     Active Substance: CHOLECALCIFEROL
     Indication: HEADACHE
     Dosage: 2000IU, UNK
     Route: 048
  16. MULTIVITAMIN                       /07504101/ [Concomitant]
     Active Substance: VITAMINS
     Indication: SUPPLEMENTATION THERAPY
     Dosage: UNK, UNK
     Route: 048
  17. TRIPLE MAGNESIUM COMPLEX [Concomitant]
     Indication: HEADACHE
     Dosage: UNK, UNK
     Route: 048
  18. LACRI-LUBE [Concomitant]
     Indication: DRY EYE
     Dosage: UNK, UNK
     Route: 047
  19. ATENOLOL. [Concomitant]
     Active Substance: ATENOLOL
     Indication: HEADACHE
     Dosage: 50 MG, Q HS
     Route: 048
  20. GLUCOSAMINE [Concomitant]
     Active Substance: GLUCOSAMINE
     Indication: HEADACHE
     Dosage: UNK, UNK
     Route: 048
  21. CELLUVISC                          /00007002/ [Concomitant]
     Indication: DRY EYE
     Dosage: UNK, UNK
     Route: 047
  22. TAMSULOSIN [Concomitant]
     Active Substance: TAMSULOSIN
     Indication: BLADDER DISORDER
     Dosage: 0.4MG, UNK
     Route: 048
  23. ELAVIL [Concomitant]
     Active Substance: AMITRIPTYLINE HYDROCHLORIDE
     Indication: PAIN
     Dosage: 30MG, UNK
     Route: 048
  24. DULOXETINE [Concomitant]
     Active Substance: DULOXETINE
     Indication: HEADACHE
     Dosage: 30MG, UNK
     Route: 048

REACTIONS (2)
  - Memory impairment [Recovered/Resolved]
  - Hallucinations, mixed [Recovered/Resolved]

NARRATIVE: CASE EVENT DATE: 20150124
